FAERS Safety Report 9465816 (Version 2)
Quarter: 2013Q3

REPORT INFORMATION
  Report Type: Spontaneous
  Country: US (occurrence: US)
  Receive Date: 20130820
  Receipt Date: 20130905
  Transmission Date: 20140515
  Serious: No
  Sender: FDA-Public Use
  Company Number: US-PFIZER INC-2013238275

PATIENT
  Age: 2 Year
  Sex: Male
  Weight: 13.61 kg

DRUGS (4)
  1. CHILDRENS ADVIL [Suspect]
     Indication: NASOPHARYNGITIS
     Dosage: 5 ML, AS NEEDED
     Route: 048
     Dates: start: 20130813, end: 20130814
  2. CHILDRENS ADVIL [Suspect]
     Indication: OROPHARYNGEAL PAIN
  3. CHILDRENS ADVIL [Suspect]
     Indication: HEADACHE
  4. VITAMIN C [Concomitant]
     Dosage: UNK

REACTIONS (2)
  - Psychomotor hyperactivity [Recovered/Resolved]
  - Aggression [Recovered/Resolved]
